FAERS Safety Report 5345949-0 (Version None)
Quarter: 2007Q2

REPORT INFORMATION
  Report Type: 
  Country: None (occurrence: None)
  Receive Date: 20070605
  Receipt Date: 20070529
  Transmission Date: 20071010
  Serious: Yes (Hospitalization, Other)
  Sender: FDA-Public Use
  Company Number: B0473667A

PATIENT
  Age: 59 Year
  Sex: Male

DRUGS (2)
  1. AMOXICILLIN AND CLAVULANATE POTASSIUM [Suspect]
     Indication: PROPHYLAXIS
     Dosage: 1.2G SINGLE DOSE
     Route: 042
  2. MIDAZOLAM HCL [Concomitant]
     Indication: PREMEDICATION
     Dosage: 7.5MG UNKNOWN
     Route: 048

REACTIONS (4)
  - ANAPHYLACTIC REACTION [None]
  - CARDIAC ARREST [None]
  - LOSS OF CONSCIOUSNESS [None]
  - RESTLESSNESS [None]
